FAERS Safety Report 8449365 (Version 10)
Quarter: 2014Q1

REPORT INFORMATION
  Report Type: Spontaneous
  Country: US (occurrence: US)
  Receive Date: 20120308
  Receipt Date: 20140123
  Transmission Date: 20141002
  Serious: Yes (Hospitalization, Other)
  Sender: FDA-Public Use
  Company Number: US-PFIZER INC-2012056748

PATIENT
  Age: 83 Year
  Sex: Female

DRUGS (3)
  1. DETROL LA [Suspect]
     Indication: URINARY INCONTINENCE
     Dosage: 4 MG, 2X/DAY
     Route: 048
     Dates: start: 2005, end: 20121221
  2. DETROL LA [Suspect]
     Dosage: UNK DOSE, ONCE A DAY
  3. DETROL LA [Suspect]
     Dosage: 4 MG, 2X/DAY
     Route: 048
     Dates: start: 20130107

REACTIONS (9)
  - Renal failure chronic [Unknown]
  - Lower limb fracture [Unknown]
  - Bronchitis [Unknown]
  - Bladder disorder [Unknown]
  - Fall [Unknown]
  - Ankle fracture [Unknown]
  - Joint injury [Unknown]
  - Diarrhoea [Unknown]
  - Drug ineffective [Unknown]
